FAERS Safety Report 4747471-9 (Version None)
Quarter: 2005Q3

REPORT INFORMATION
  Report Type: 
  Country: None (occurrence: None)
  Receive Date: 20050815
  Receipt Date: 20050609
  Transmission Date: 20060218
  Serious: No
  Sender: FDA-Public Use
  Company Number: USA050496029

PATIENT
  Age: 36 Year
  Sex: Male

DRUGS (1)
  1. CIALIS [Suspect]
     Indication: ERECTILE DYSFUNCTION
     Dosage: 20 MG/1 DAY
     Dates: start: 20050101

REACTIONS (3)
  - HYPERTRICHOSIS [None]
  - NIPPLE DISORDER [None]
  - SEMEN VOLUME INCREASED [None]
